FAERS Safety Report 7764338-2 (Version None)
Quarter: 2011Q3

REPORT INFORMATION
  Report Type: 
  Country: None (occurrence: None)
  Receive Date: 20110921
  Receipt Date: 20110916
  Transmission Date: 20111222
  Serious: Yes (Death, Hospitalization)
  Sender: FDA-Public Use
  Company Number: BR-BRISTOL-MYERS SQUIBB COMPANY-15919426

PATIENT
  Age: 40 Year
  Sex: Male

DRUGS (4)
  1. GABAPENTIN [Concomitant]
  2. BROMAZEPAM [Concomitant]
  3. METHADONE HCL [Concomitant]
  4. IPILIMUMAB [Suspect]
     Indication: MALIGNANT MELANOMA
     Dosage: INTERRUPTED ON 30JUN11
     Route: 042
     Dates: start: 20110630

REACTIONS (5)
  - NEOPLASM MALIGNANT [None]
  - BLOOD CREATININE INCREASED [None]
  - RESPIRATORY FAILURE [None]
  - HYPERCALCAEMIA [None]
  - CONFUSIONAL STATE [None]
